FAERS Safety Report 8818613 (Version 1)
Quarter: 2012Q4

REPORT INFORMATION
  Report Type: Spontaneous
  Country: US (occurrence: None)
  Receive Date: 20121002
  Receipt Date: 20121002
  Transmission Date: 20130627
  Serious: Yes (Hospitalization)
  Sender: FDA-Public Use
  Company Number: 139471

PATIENT
  Age: 62 Year
  Sex: Female

DRUGS (2)
  1. CARBOPLATIN [Suspect]
     Indication: OVARIAN CANCER
  2. PACLITAXEL [Suspect]
     Indication: OVARIAN CANCER

REACTIONS (10)
  - Neuropathy peripheral [None]
  - Hemianopia homonymous [None]
  - Embolic cerebral infarction [None]
  - Cardiac valve vegetation [None]
  - Pulmonary embolism [None]
  - Malignant neoplasm progression [None]
  - Ovarian cancer [None]
  - Renal infarct [None]
  - Deep vein thrombosis [None]
  - Endocarditis noninfective [None]
